FAERS Safety Report 6060287-9 (Version None)
Quarter: 2009Q1

REPORT INFORMATION
  Report Type: 
  Country: None (occurrence: None)
  Receive Date: 20090129
  Receipt Date: 20090122
  Transmission Date: 20090719
  Serious: No
  Sender: FDA-Public Use
  Company Number: MSRT-NO-0809S-0084

PATIENT
  Age: 49 Year
  Sex: Female
  Weight: 43 kg

DRUGS (2)
  1. METASTRON [Suspect]
     Indication: METASTASES TO BONE
     Dosage: NR, SINGLE DOSE, I.V.
     Route: 042
     Dates: start: 20080319, end: 20080319
  2. METASTRON [Suspect]
     Indication: METASTATIC PAIN
     Dosage: NR, SINGLE DOSE, I.V.
     Route: 042
     Dates: start: 20080319, end: 20080319

REACTIONS (2)
  - BONE MARROW FAILURE [None]
  - DISEASE PROGRESSION [None]
